FAERS Safety Report 8854130 (Version 1)
Quarter: 2012Q4

REPORT INFORMATION
  Report Type: Spontaneous
  Country: US (occurrence: None)
  Receive Date: 20121019
  Receipt Date: 20121019
  Transmission Date: 20130627
  Serious: No
  Sender: FDA-Public Use
  Company Number: None

PATIENT
  Sex: Male
  Weight: 87.09 kg

DRUGS (1)
  1. LIPITOR [Suspect]
     Indication: HYPERLIPIDEMIA
     Dosage: 10mg Po
     Route: 048

REACTIONS (2)
  - Balance disorder [None]
  - Hypoaesthesia [None]
